FAERS Safety Report 8078750-8 (Version None)
Quarter: 2012Q1

REPORT INFORMATION
  Report Type: 
  Country: None (occurrence: None)
  Receive Date: 20120125
  Receipt Date: 20120111
  Transmission Date: 20120608
  Serious: Yes (Hospitalization, Disabling, Other)
  Sender: FDA-Public Use
  Company Number: 2012MA000485

PATIENT
  Sex: Male

DRUGS (21)
  1. SIMVASTATIN [Concomitant]
  2. DOCUSATE [Concomitant]
  3. IMDUR [Concomitant]
  4. DIGOXIN [Suspect]
     Dosage: 0.125 MG;QD;PO
     Route: 048
     Dates: start: 20080403, end: 20080602
  5. FUROSEMIDE [Concomitant]
  6. HYDROLAZINE [Concomitant]
  7. AMIODARONE HCL [Concomitant]
  8. LANTUS [Concomitant]
  9. WARFARIN SODIUM [Concomitant]
  10. PHOSLO [Concomitant]
  11. RENAL CAPSULES [Concomitant]
  12. CLARITIN [Concomitant]
  13. FOLIC ACID [Concomitant]
  14. PLAVIX [Concomitant]
  15. DIATX [Concomitant]
  16. ALLOPURINOL [Concomitant]
  17. ASPIRIN [Concomitant]
  18. EPOGEN [Concomitant]
  19. CALCITRIOL [Concomitant]
  20. CARVEDILOL [Concomitant]
  21. APAP TAB [Concomitant]

REACTIONS (17)
  - ISCHAEMIC NEPHROPATHY [None]
  - ARTERIOSCLEROSIS [None]
  - SHOCK [None]
  - DRY SKIN [None]
  - TYPE 2 DIABETES MELLITUS [None]
  - CORONARY ARTERY DISEASE [None]
  - ISCHAEMIC NEUROPATHY [None]
  - VENTRICULAR TACHYCARDIA [None]
  - HYPERTENSIVE HEART DISEASE [None]
  - CARDIOMEGALY [None]
  - RENAL FAILURE CHRONIC [None]
  - ISCHAEMIC CARDIOMYOPATHY [None]
  - HAEMODIALYSIS [None]
  - SKIN WARM [None]
  - PULMONARY CONGESTION [None]
  - STASIS DERMATITIS [None]
  - ATRIAL FIBRILLATION [None]
